FAERS Safety Report 4633976-8 (Version None)
Quarter: 2005Q2

REPORT INFORMATION
  Report Type: 
  Country: None (occurrence: None)
  Receive Date: 20050412
  Receipt Date: 20050412
  Transmission Date: 20051028
  Serious: Yes (Other)
  Sender: FDA-Public Use
  Company Number: None

PATIENT
  Age: 64 Year
  Sex: Female

DRUGS (2)
  1. EXTRANEAL [Suspect]
     Indication: PERITONEAL DIALYSIS
     Dosage: DAILY 8 HRS INTRAPERI
     Route: 033
     Dates: start: 20050408, end: 20050409
  2. EXTRANEAL [Suspect]
     Indication: RENAL FAILURE CHRONIC
     Dosage: DAILY 8 HRS INTRAPERI
     Route: 033
     Dates: start: 20050408, end: 20050409

REACTIONS (2)
  - RASH MACULO-PAPULAR [None]
  - URTICARIA [None]
